FAERS Safety Report 4902061-X (Version None)
Quarter: 2006Q1

REPORT INFORMATION
  Report Type: 
  Country: None (occurrence: None)
  Receive Date: 20060206
  Receipt Date: 20060124
  Transmission Date: 20060701
  Serious: Yes (Hospitalization)
  Sender: FDA-Public Use
  Company Number: CL-GLAXOSMITHKLINE-A0590933A

PATIENT
  Age: 31 Year
  Sex: Female

DRUGS (6)
  1. AVANDIA [Suspect]
     Indication: INSULIN RESISTANCE
     Dosage: 4MG PER DAY
     Route: 048
     Dates: start: 20030101, end: 20060127
  2. LITHIUM [Suspect]
     Indication: SCHIZOPHRENIA
  3. CHLORPROMAZINE [Suspect]
  4. LAMICTAL [Concomitant]
  5. QUETIAPINE [Concomitant]
  6. EUTIROX [Concomitant]
     Indication: HYPOTHYROIDISM
     Dosage: 50MG PER DAY

REACTIONS (3)
  - INTRACRANIAL PRESSURE INCREASED [None]
  - PAPILLOEDEMA [None]
  - VISUAL ACUITY REDUCED [None]
